FAERS Safety Report 15902806 (Version 1)
Quarter: 2019Q1

REPORT INFORMATION
  Report Type: Spontaneous
  Country: IT (occurrence: IT)
  Receive Date: 20190202
  Receipt Date: 20190202
  Transmission Date: 20190417
  Serious: Yes (Other)
  Sender: FDA-Public Use
  Company Number: IT-AUROBINDO-AUR-APL-2019-004260

PATIENT

DRUGS (1)
  1. CEFIXIME. [Suspect]
     Active Substance: CEFIXIME
     Indication: OTITIS MEDIA ACUTE
     Dosage: UNK
     Route: 065
     Dates: start: 20181115, end: 20181122

REACTIONS (5)
  - Gait disturbance [Recovered/Resolved]
  - Rash [Recovered/Resolved]
  - Asthenia [Recovered/Resolved]
  - Joint swelling [Recovered/Resolved]
  - Papule [Recovered/Resolved]

NARRATIVE: CASE EVENT DATE: 20181122
